FAERS Safety Report 9387290 (Version 1)
Quarter: 2013Q3

REPORT INFORMATION
  Report Type: Spontaneous
  Country: DE (occurrence: DE)
  Receive Date: 20130708
  Receipt Date: 20130708
  Transmission Date: 20140515
  Serious: Yes (Other)
  Sender: FDA-Public Use
  Company Number: DE-JNJFOC-20130616663

PATIENT
  Sex: Male

DRUGS (1)
  1. RISPERDAL [Suspect]
     Indication: PRODUCT USED FOR UNKNOWN INDICATION
     Route: 065

REACTIONS (8)
  - Arrhythmia [Unknown]
  - Muscle twitching [Unknown]
  - Vision blurred [Unknown]
  - Cardiovascular disorder [Unknown]
  - Palpitations [Unknown]
  - Metabolic disorder [Unknown]
  - Weight increased [Unknown]
  - Adverse event [Unknown]
